FAERS Safety Report 20335437 (Version 1)
Quarter: 2022Q1

REPORT INFORMATION
  Report Type: Spontaneous
  Country: EG (occurrence: None)
  Receive Date: 20220113
  Receipt Date: 20220113
  Transmission Date: 20220423
  Serious: Yes (Life-Threatening, Other)
  Sender: FDA-Public Use
  Company Number: None

PATIENT
  Age: 31 Year
  Sex: Female
  Weight: 97 kg

DRUGS (1)
  1. TERCONAZOLE [Suspect]
     Active Substance: TERCONAZOLE
     Indication: Vulvovaginal mycotic infection
     Dosage: FREQUENCY : AT BEDTIME;?
     Route: 067
     Dates: start: 20220112, end: 20220113

REACTIONS (2)
  - Mouth ulceration [None]
  - Hypersensitivity [None]

NARRATIVE: CASE EVENT DATE: 20220112
